FAERS Safety Report 5708337-0 (Version None)
Quarter: 2008Q2

REPORT INFORMATION
  Report Type: 
  Country: None (occurrence: None)
  Receive Date: 20080414
  Receipt Date: 20050112
  Transmission Date: 20081010
  Serious: Yes (Death)
  Sender: FDA-Public Use
  Company Number: 2005VX000034

PATIENT
  Age: 37 Year
  Sex: Female

DRUGS (2)
  1. CHLORDIAZEPOXIDE HCL [Suspect]
     Dosage: 60 DF; PO
     Route: 048
     Dates: start: 20041218
  2. CO-PROXAMOL (APOREX) [Suspect]
     Dosage: 26 DF; PO
     Route: 048
     Dates: start: 20041218

REACTIONS (7)
  - ACIDOSIS [None]
  - ALCOHOL USE [None]
  - CARDIAC ARREST [None]
  - COAGULATION TIME ABNORMAL [None]
  - HEPATIC FAILURE [None]
  - INTENTIONAL OVERDOSE [None]
  - RESPIRATORY ARREST [None]
